FAERS Safety Report 9474448 (Version 2)
Quarter: 2013Q3

REPORT INFORMATION
  Report Type: Spontaneous
  Country: US (occurrence: US)
  Receive Date: 20130823
  Receipt Date: 20130823
  Transmission Date: 20140515
  Serious: Yes (Other)
  Sender: FDA-Public Use
  Company Number: US-INCYTE CORPORATION-2013IN001614

PATIENT
  Age: 70 Year
  Sex: Male

DRUGS (7)
  1. JAKAFI [Suspect]
     Indication: MYELOFIBROSIS
     Dosage: 5 MG, BID
     Route: 048
     Dates: start: 2013, end: 201307
  2. JAKAFI [Suspect]
     Dosage: NOT SPECIFIED
     Dates: start: 20130804
  3. HYDROCHLOROTHIAZIDE W/LOSARTAN [Concomitant]
  4. FLOMAX [Concomitant]
  5. AVODART [Concomitant]
  6. TAMSULOSIN [Concomitant]
  7. VITAMIN D [Concomitant]

REACTIONS (5)
  - Bladder cancer [Unknown]
  - Haematuria [Not Recovered/Not Resolved]
  - Cystitis noninfective [Not Recovered/Not Resolved]
  - Nephrolithiasis [Not Recovered/Not Resolved]
  - Urine analysis abnormal [Not Recovered/Not Resolved]
